FAERS Safety Report 13349868 (Version 1)
Quarter: 2017Q1

REPORT INFORMATION
  Report Type: Spontaneous
  Country: US (occurrence: US)
  Receive Date: 20170318
  Receipt Date: 20170318
  Transmission Date: 20170429
  Serious: Yes (Life-Threatening, Hospitalization)
  Sender: FDA-Public Use
  Company Number: None

PATIENT
  Age: 51 Year
  Weight: 128.2 kg

DRUGS (18)
  1. ZOFRAN [Concomitant]
     Active Substance: ONDANSETRON HYDROCHLORIDE
  2. B-2 [Concomitant]
  3. MELATONIN [Concomitant]
     Active Substance: MELATONIN
  4. OXYBUTININ [Concomitant]
     Active Substance: OXYBUTYNIN
  5. IMODIUM [Concomitant]
     Active Substance: LOPERAMIDE HYDROCHLORIDE
  6. BENADRYL [Concomitant]
     Active Substance: DIPHENHYDRAMINE HYDROCHLORIDE
  7. RIZATRIPTAN. [Concomitant]
     Active Substance: RIZATRIPTAN
  8. SERTRALINE [Concomitant]
     Active Substance: SERTRALINE HYDROCHLORIDE
  9. COUMADIN [Concomitant]
     Active Substance: WARFARIN SODIUM
  10. TRAMADOL. [Concomitant]
     Active Substance: TRAMADOL
  11. LOVENOX [Concomitant]
     Active Substance: ENOXAPARIN SODIUM
  12. ESTROGEL [Suspect]
     Active Substance: ESTRADIOL
     Indication: HOT FLUSH
     Dosage: QUANTITY:1 PUMP,  GRAMS;OTHER FREQUENCY:EVERY OTHER DAY;OTHER ROUTE:RUB GEL ON SKIN?
     Route: 061
     Dates: start: 20130101, end: 20170313
  13. ALLIGN PROBIOTIC [Concomitant]
  14. ENDEROL [Concomitant]
  15. LORATADINE. [Concomitant]
     Active Substance: LORATADINE
  16. VITAMIN D3 [Concomitant]
     Active Substance: CHOLECALCIFEROL
  17. TYLENOL EXTRA STRENGTH [Concomitant]
     Active Substance: ACETAMINOPHEN
  18. TRAZODONE [Concomitant]
     Active Substance: TRAZODONE HYDROCHLORIDE

REACTIONS (2)
  - Pulmonary thrombosis [None]
  - Thrombosis [None]

NARRATIVE: CASE EVENT DATE: 20130313
